FAERS Safety Report 12678831 (Version 1)
Quarter: 2016Q3

REPORT INFORMATION
  Report Type: Spontaneous
  Country: NL (occurrence: NL)
  Receive Date: 20160824
  Receipt Date: 20160824
  Transmission Date: 20161109
  Serious: Yes (Life-Threatening)
  Sender: FDA-Public Use
  Company Number: NL-ROCHE-1818763

PATIENT
  Age: 59 Year
  Sex: Male

DRUGS (2)
  1. FLUCLOXACILLINE [Suspect]
     Active Substance: FLUCLOXACILLIN
     Indication: PNEUMONIA
     Dosage: 1 KEER PER DAG 1 STUK(S)
     Route: 048
     Dates: start: 20160722, end: 20160725
  2. CEFTRIAXONE. [Suspect]
     Active Substance: CEFTRIAXONE
     Indication: PNEUMONIA
     Dosage: 1 KEER PER DAG 1 STUK(S)
     Route: 042
     Dates: start: 20160723, end: 20160725

REACTIONS (1)
  - Pancytopenia [Recovered/Resolved]

NARRATIVE: CASE EVENT DATE: 20160724
